FAERS Safety Report 20502324 (Version 1)
Quarter: 2022Q1

REPORT INFORMATION
  Report Type: Spontaneous
  Country: US (occurrence: None)
  Receive Date: 20220221
  Receipt Date: 20220221
  Transmission Date: 20220423
  Serious: Yes (Death)
  Sender: FDA-Public Use
  Company Number: None

PATIENT
  Age: 44 Year
  Sex: Female

DRUGS (1)
  1. STIVARGA [Suspect]
     Active Substance: REGORAFENIB
     Indication: Appendix cancer
     Dosage: FREQUENCY : DAILY;?
     Route: 048
     Dates: start: 20211023

REACTIONS (1)
  - Appendix cancer [None]

NARRATIVE: CASE EVENT DATE: 20211202
